FAERS Safety Report 5544335-8 (Version None)
Quarter: 2007Q4

REPORT INFORMATION
  Report Type: 
  Country: None (occurrence: None)
  Receive Date: 20071206
  Receipt Date: 20071203
  Transmission Date: 20080405
  Serious: Yes (Death)
  Sender: FDA-Public Use
  Company Number: 163-21880-07120064

PATIENT
  Age: 75 Year
  Sex: Male

DRUGS (4)
  1. REVLIMID [Suspect]
     Indication: MULTIPLE MYELOMA
     Dosage: 5-10MG, DAILY, ORAL; 25-10MG, DAILY, ORAL; 1 IN 1 D, ORAL
     Route: 048
     Dates: start: 20070219, end: 20070601
  2. REVLIMID [Suspect]
     Indication: MULTIPLE MYELOMA
     Dosage: 5-10MG, DAILY, ORAL; 25-10MG, DAILY, ORAL; 1 IN 1 D, ORAL
     Route: 048
     Dates: start: 20070615, end: 20071001
  3. REVLIMID [Suspect]
     Indication: MULTIPLE MYELOMA
     Dosage: 5-10MG, DAILY, ORAL; 25-10MG, DAILY, ORAL; 1 IN 1 D, ORAL
     Route: 048
     Dates: start: 20071010, end: 20071101
  4. REVLIMID [Suspect]

REACTIONS (1)
  - DEATH [None]
